FAERS Safety Report 4544304-0 (Version None)
Quarter: 2005Q1

REPORT INFORMATION
  Report Type: 
  Country: None (occurrence: None)
  Receive Date: 20050104
  Receipt Date: 20041014
  Transmission Date: 20050727
  Serious: Yes (Hospitalization, Other)
  Sender: FDA-Public Use
  Company Number: US-AMGEN-US095730

PATIENT
  Sex: Male

DRUGS (3)
  1. PROCRIT [Suspect]
     Indication: ANAEMIA
     Dates: start: 20031201, end: 20040101
  2. PREDNISONE [Concomitant]
  3. CELLCEPT [Concomitant]

REACTIONS (4)
  - APLASIA PURE RED CELL [None]
  - COOMBS TEST POSITIVE [None]
  - HAEMOLYTIC ANAEMIA [None]
  - SPLENOMEGALY [None]
